FAERS Safety Report 7766648-1 (Version None)
Quarter: 2011Q3

REPORT INFORMATION
  Report Type: 
  Country: None (occurrence: None)
  Receive Date: 20110916
  Receipt Date: 20110902
  Transmission Date: 20111222
  Serious: Yes (Hospitalization)
  Sender: FDA-Public Use
  Company Number: IPC201109-003170

PATIENT
  Age: 88 Year
  Sex: Female

DRUGS (6)
  1. CHLORTHALIDONE [Suspect]
     Indication: HYPERTENSION
  2. LISINOPRIL [Suspect]
     Indication: HYPERTENSION
  3. HYDRALAZINE HCL [Suspect]
     Indication: HYPERTENSION
     Dosage: 2 IN 1 D
  4. DILTIAZEM HCL [Suspect]
     Indication: HYPERTENSION
     Dosage: EXTENDED RELEASE 180 MG DAILY
  5. CLONIDINE [Suspect]
     Indication: HYPERTENSION
     Dosage: WEEKLY, TRANSDERMAL
     Route: 062
  6. METOPROLOL TARTRATE [Suspect]
     Indication: HYPERTENSION
     Dosage: 2 IN 1 D

REACTIONS (6)
  - BRADYCARDIA [None]
  - PRESYNCOPE [None]
  - FATIGUE [None]
  - NODAL RHYTHM [None]
  - CEREBRAL ATROPHY [None]
  - BLOOD PRESSURE SYSTOLIC INCREASED [None]
